FAERS Safety Report 12609691 (Version 1)
Quarter: 2016Q3

REPORT INFORMATION
  Report Type: Spontaneous
  Country: US (occurrence: US)
  Receive Date: 20160801
  Receipt Date: 20160801
  Transmission Date: 20161109
  Serious: No
  Sender: FDA-Public Use
  Company Number: PHEH2016US018508

PATIENT
  Age: 61 Year
  Sex: Female

DRUGS (2)
  1. COSENTYX [Suspect]
     Active Substance: SECUKINUMAB
     Indication: PSORIASIS
     Dosage: 300 MG, QW
     Route: 058
     Dates: start: 20160709
  2. COSENTYX [Suspect]
     Active Substance: SECUKINUMAB
     Indication: PSORIATIC ARTHROPATHY

REACTIONS (10)
  - Feeling cold [Unknown]
  - Cyst [Unknown]
  - Eye discharge [Unknown]
  - Rash [Unknown]
  - Nasal congestion [Unknown]
  - Wound secretion [Unknown]
  - Headache [Unknown]
  - Toothache [Unknown]
  - Nervousness [Unknown]
  - Infection [Unknown]

NARRATIVE: CASE EVENT DATE: 20160715
